FAERS Safety Report 10792538 (Version 6)
Quarter: 2015Q3

REPORT INFORMATION
  Report Type: Report from Study
  Country: AT (occurrence: AT)
  Receive Date: 20150213
  Receipt Date: 20150702
  Transmission Date: 20151125
  Serious: Yes (Death, Hospitalization, Other)
  Sender: FDA-Public Use
  Company Number: PHHY2014AT069152

PATIENT

DRUGS (18)
  1. PASSEDAN [Concomitant]
     Indication: PRODUCT USED FOR UNKNOWN INDICATION
     Dosage: 30 DRP, QHS
     Route: 065
  2. STI571 [Suspect]
     Active Substance: IMATINIB MESYLATE
     Dosage: }400 MG
     Route: 065
  3. TORASEMID [Concomitant]
     Active Substance: TORSEMIDE
     Indication: PRODUCT USED FOR UNKNOWN INDICATION
     Dosage: 2 DF, BID (MORNING AND AFTERNOON)
     Route: 065
  4. ELIQUIS [Concomitant]
     Active Substance: APIXABAN
     Indication: PRODUCT USED FOR UNKNOWN INDICATION
     Dosage: 1 DF, BID (MORNING AND EVENING)
     Route: 065
     Dates: start: 20150214
  5. STI571 [Suspect]
     Active Substance: IMATINIB MESYLATE
     Indication: CHRONIC MYELOID LEUKAEMIA
     Dosage: {400 MG
     Route: 065
     Dates: start: 20030524
  6. DIGIMERCK [Concomitant]
     Active Substance: DIGITOXIN
     Indication: PRODUCT USED FOR UNKNOWN INDICATION
     Dosage: 1 DF, QD (MORNING)
     Route: 065
  7. STI571 [Suspect]
     Active Substance: IMATINIB MESYLATE
     Dosage: {400 MG
     Route: 065
     Dates: end: 201502
  8. SOTACOR [Concomitant]
     Active Substance: SOTALOL HYDROCHLORIDE
     Indication: PRODUCT USED FOR UNKNOWN INDICATION
     Dosage: 0.5 DF, BID (MORNING AND EVENING)
     Route: 065
  9. PANTOLOC//PANTOPRAZOLE SODIUM SESQUIHYDRATE [Concomitant]
     Active Substance: PANTOPRAZOLE SODIUM
     Indication: PRODUCT USED FOR UNKNOWN INDICATION
     Dosage: 1 DF, QHS
     Route: 065
  10. FENTANYL. [Concomitant]
     Active Substance: FENTANYL
     Indication: PRODUCT USED FOR UNKNOWN INDICATION
     Dosage: 34.5 UG/HR (EVERY 72 HOURS)
     Route: 065
  11. NOVALGIN [Concomitant]
     Active Substance: METAMIZOLE SODIUM
     Indication: PRODUCT USED FOR UNKNOWN INDICATION
     Dosage: 20 DRP, TID
     Route: 065
  12. AQUAPHORIL [Concomitant]
     Indication: PRODUCT USED FOR UNKNOWN INDICATION
     Dosage: 0.5 DF, QD (MORNING)
     Route: 065
  13. UNASYN [Concomitant]
     Active Substance: AMPICILLIN SODIUM\SULBACTAM SODIUM
     Indication: PRODUCT USED FOR UNKNOWN INDICATION
     Dosage: 1 DF, TID (3X1)
     Route: 065
     Dates: end: 20150403
  14. MAGNOSOLV [Concomitant]
     Indication: PRODUCT USED FOR UNKNOWN INDICATION
     Dosage: 1 DF, BID (MORNING AND AFTERNOON)
     Route: 065
  15. SAROTEN [Concomitant]
     Active Substance: AMITRIPTYLINE
     Indication: PRODUCT USED FOR UNKNOWN INDICATION
     Dosage: 25 MG, QHS
     Route: 065
  16. TEMESTA [Concomitant]
     Active Substance: LORAZEPAM
     Indication: PRODUCT USED FOR UNKNOWN INDICATION
     Dosage: 0.5 DF, QHS
     Route: 065
  17. URBASON//METHYLPREDNISOLONE [Concomitant]
     Indication: PRODUCT USED FOR UNKNOWN INDICATION
     Dosage: 04 MG, QD (MORNING)
     Route: 065
  18. KCL [Concomitant]
     Active Substance: POTASSIUM CHLORIDE
     Indication: PRODUCT USED FOR UNKNOWN INDICATION
     Dosage: 1 DF, QD (MORNING)
     Route: 065

REACTIONS (26)
  - Respiratory distress [Unknown]
  - Infection [Unknown]
  - Hypertensive cardiomyopathy [Unknown]
  - Oedema peripheral [Unknown]
  - Pain in extremity [Unknown]
  - Renal disorder [Unknown]
  - Paraesthesia [Unknown]
  - Urinary tract infection [Unknown]
  - Pleural effusion [Fatal]
  - Dyspnoea [Unknown]
  - Fatigue [Unknown]
  - Arthralgia [Unknown]
  - Leukocytosis [Unknown]
  - Haemorrhagic diathesis [Unknown]
  - Lung disorder [Unknown]
  - Night sweats [Unknown]
  - Ischaemic cardiomyopathy [Unknown]
  - Anal fistula [Unknown]
  - Musculoskeletal discomfort [Unknown]
  - Sciatica [Unknown]
  - Haemodilution [Unknown]
  - Blood creatinine increased [Recovering/Resolving]
  - Cardiovascular disorder [Fatal]
  - Bronchitis [Recovering/Resolving]
  - General physical health deterioration [Unknown]
  - Cardiac failure [Unknown]

NARRATIVE: CASE EVENT DATE: 20131125
